FAERS Safety Report 18510611 (Version 1)
Quarter: 2020Q4

REPORT INFORMATION
  Report Type: Report from Study
  Country: US (occurrence: US)
  Receive Date: 20201117
  Receipt Date: 20201117
  Transmission Date: 20210114
  Serious: Yes (Death, Hospitalization)
  Sender: FDA-Public Use
  Company Number: US-BAUSCH-BL-2020-018912

PATIENT
  Age: 81 Year
  Sex: Female

DRUGS (2)
  1. XIFAXAN [Suspect]
     Active Substance: RIFAXIMIN
     Indication: HEPATIC CIRRHOSIS
     Route: 048
  2. XIFAXAN [Suspect]
     Active Substance: RIFAXIMIN
     Indication: HEPATIC ENCEPHALOPATHY
     Route: 048
     Dates: start: 2018

REACTIONS (6)
  - Ill-defined disorder [Fatal]
  - Inability to afford medication [Unknown]
  - Liver disorder [Fatal]
  - Therapy interrupted [Unknown]
  - Insurance issue [Unknown]
  - Condition aggravated [Fatal]
